FAERS Safety Report 9800178 (Version 2)
Quarter: 2014Q1

REPORT INFORMATION
  Report Type: Spontaneous
  Country: IE (occurrence: IE)
  Receive Date: 20140106
  Receipt Date: 20140203
  Transmission Date: 20141002
  Serious: Yes (Life-Threatening, Hospitalization)
  Sender: FDA-Public Use
  Company Number: US-ASTRAZENECA-2014SE00044

PATIENT
  Age: 171 Day
  Sex: Male

DRUGS (4)
  1. SYNAGIS [Suspect]
     Indication: PRODUCT USED FOR UNKNOWN INDICATION
     Route: 030
     Dates: start: 20131015
  2. VITAMIN D [Concomitant]
     Indication: PRODUCT USED FOR UNKNOWN INDICATION
  3. ABIDEC [Concomitant]
     Indication: PRODUCT USED FOR UNKNOWN INDICATION
  4. FERINSOL [Concomitant]
     Indication: PRODUCT USED FOR UNKNOWN INDICATION

REACTIONS (6)
  - Respiratory arrest [Unknown]
  - Bronchopulmonary dysplasia [Recovered/Resolved with Sequelae]
  - Unevaluable event [Unknown]
  - Feeding disorder [Recovered/Resolved]
  - Respiratory syncytial virus bronchiolitis [Recovered/Resolved]
  - Respiratory tract infection [Unknown]
